FAERS Safety Report 7914444-4 (Version None)
Quarter: 2011Q4

REPORT INFORMATION
  Report Type: 
  Country: None (occurrence: None)
  Receive Date: 20111115
  Receipt Date: 20111108
  Transmission Date: 20120403
  Serious: Yes (Death)
  Sender: FDA-Public Use
  Company Number: JP-SANOFI-AVENTIS-2011SA073093

PATIENT
  Age: 80 Year
  Sex: Male
  Weight: 45 kg

DRUGS (7)
  1. OXALIPLATIN [Suspect]
     Indication: COLON CANCER
     Route: 041
     Dates: start: 20111003, end: 20111003
  2. FLUOROURACIL [Concomitant]
     Indication: COLON CANCER
     Route: 040
     Dates: start: 20111003, end: 20111004
  3. DEXAMETHASONE SODIUM PHOSPHATE [Concomitant]
     Indication: PREMEDICATION
     Route: 041
     Dates: start: 20111003, end: 20111003
  4. LEVOLEUCOVORIN CALCIUM [Concomitant]
     Indication: COLON CANCER
     Route: 041
     Dates: start: 20111003, end: 20111004
  5. ALOXI [Concomitant]
     Indication: PREMEDICATION
     Route: 041
     Dates: start: 20111003, end: 20111003
  6. BEVACIZUMAB [Suspect]
     Indication: COLON CANCER
     Route: 041
     Dates: start: 20111003, end: 20111003
  7. FLUOROURACIL [Concomitant]
     Route: 041
     Dates: start: 20111003, end: 20111004

REACTIONS (1)
  - GASTROINTESTINAL PERFORATION [None]
